FAERS Safety Report 8381436 (Version 2)
Quarter: 2013Q2

REPORT INFORMATION
  Report Type: Spontaneous
  Country: US (occurrence: None)
  Receive Date: 20111221
  Receipt Date: 20121227
  Transmission Date: 20140414
  Serious: Yes (Other)
  Sender: FDA-Public Use
  Company Number: PHEH2011US04917

PATIENT
  Age: 66 Year
  Sex: Female
  Weight: 56.2 kg

DRUGS (8)
  1. EXJADE [Suspect]
     Indication: HAEMOCHROMATOSIS
     Route: 048
     Dates: start: 201108
  2. EXJADE [Suspect]
     Route: 048
     Dates: start: 201108
  3. FOLIC ACID [Concomitant]
  4. PRILOSEC (OMEPRAZOLE) [Concomitant]
  5. LASIX [Concomitant]
  6. BENAZEPRIL HYDROCHLORIDE [Concomitant]
  7. CARVEDIOL (CARVEDIOL) [Concomitant]
  8. VITAMIN B12 (CYANOCOBALAMIN) [Concomitant]

REACTIONS (8)
  - DIARRHOEA [None]
  - HAEMATOCHEZIA [None]
  - MUCOUS STOOLS [None]
  - ASTHENIA [None]
  - BLOOD IRON DECREASED [None]
  - FATIGUE [None]
  - ABDOMINAL PAIN [None]
  - Nausea [None]
